FAERS Safety Report 4950830-2 (Version None)
Quarter: 2006Q1

REPORT INFORMATION
  Report Type: 
  Country: None (occurrence: None)
  Receive Date: 20060322
  Receipt Date: 20021101
  Transmission Date: 20060701
  Serious: Yes (Other)
  Sender: FDA-Public Use
  Company Number: DE-BRISTOL-MYERS SQUIBB COMPANY-13310180

PATIENT
  Age: 50 Year
  Sex: Male
  Weight: 65 kg

DRUGS (13)
  1. ZERIT [Suspect]
     Indication: HIV INFECTION
     Dates: start: 19960601
  2. VIDEX [Suspect]
     Indication: HIV INFECTION
     Dates: start: 19960301
  3. ZIDOVUDINE [Concomitant]
     Indication: HIV INFECTION
     Dates: start: 19900101, end: 19960601
  4. LAMIVUDINE [Concomitant]
     Indication: HIV INFECTION
     Dates: start: 19960601
  5. INVIRASE [Concomitant]
     Indication: HIV INFECTION
     Dates: start: 19960601
  6. DELAVIRDINE [Concomitant]
     Indication: HIV INFECTION
     Dates: start: 19991201
  7. RITONAVIR [Concomitant]
     Indication: HIV INFECTION
     Dates: start: 19990301
  8. AGENERASE [Concomitant]
     Indication: HIV INFECTION
     Dates: start: 19991201
  9. LOPINAVIR [Concomitant]
     Indication: HIV INFECTION
     Dates: start: 20000101
  10. ZIAGEN [Concomitant]
     Dates: start: 20000101
  11. INDINIVIR SULFATE [Concomitant]
     Indication: HIV INFECTION
     Dates: start: 19971101
  12. KALETRA [Concomitant]
     Indication: HIV INFECTION
  13. VIREAD [Concomitant]
     Indication: HIV INFECTION

REACTIONS (5)
  - CORONARY ARTERY DISEASE [None]
  - FAT TISSUE INCREASED [None]
  - HYPERLIPIDAEMIA [None]
  - HYPERTENSION [None]
  - OESOPHAGEAL CANDIDIASIS [None]
